FAERS Safety Report 15538481 (Version 2)
Quarter: 2019Q1

REPORT INFORMATION
  Report Type: Spontaneous
  Country: NL (occurrence: NL)
  Receive Date: 20181022
  Receipt Date: 20190103
  Transmission Date: 20190417
  Serious: Yes (Hospitalization)
  Sender: FDA-Public Use
  Company Number: NL-MYLANLABS-2018M1078796

PATIENT
  Age: 71 Year
  Sex: Male

DRUGS (8)
  1. DOXYCYCLINE. [Suspect]
     Active Substance: DOXYCYCLINE
     Indication: BRONCHITIS
     Dosage: 200 MG, QD (100 MILLIGRAM, TWO TIMES A DAY)
     Route: 065
     Dates: start: 20180220, end: 20180221
  2. METOPROLOL RETARD GEA [Concomitant]
     Active Substance: METOPROLOL
     Indication: PRODUCT USED FOR UNKNOWN INDICATION
     Dosage: 50 MG, QD (50 MILLIGRAM, ONCE A DAY)
     Route: 065
     Dates: start: 20180222, end: 20180222
  3. DOXYCYCLINE. [Suspect]
     Active Substance: DOXYCYCLINE
     Indication: BRONCHITIS
     Dosage: 100 MILLIGRAM, QD
     Route: 048
     Dates: start: 20180221, end: 20180221
  4. PANTOPRAZOL                        /01263201/ [Concomitant]
     Active Substance: PANTOPRAZOLE
     Indication: PRODUCT USED FOR UNKNOWN INDICATION
     Dosage: 40 MG, UNK, 40 MILLIGRAM
     Route: 065
  5. DOXYCYCLINE. [Suspect]
     Active Substance: DOXYCYCLINE
     Dosage: 100 MG, QD (100 MILLIGRAM, ONCE A DAY)
     Route: 065
     Dates: start: 20180221, end: 20180222
  6. TAMSULOSINE HCL [Concomitant]
     Active Substance: TAMSULOSIN HYDROCHLORIDE
     Indication: PRODUCT USED FOR UNKNOWN INDICATION
     Dosage: 0.4 MG, QD (0.4 MILLIGRAM, ONCE A DAY)
     Route: 065
  7. SIMVASTATINE TEVA [Concomitant]
     Indication: PRODUCT USED FOR UNKNOWN INDICATION
     Dosage: 40 MG, QD (40 MILLIGRAM, ONCE A DAY)
  8. ACENOCOUMAROL [Concomitant]
     Active Substance: ACENOCOUMAROL
     Indication: PRODUCT USED FOR UNKNOWN INDICATION
     Dosage: 1 DOSAGE FORM MEESTAL 3STUKS EN 1 X PER WEEK 2 TABLETJES PD
     Route: 065

REACTIONS (5)
  - Diarrhoea [Recovering/Resolving]
  - Presyncope [Recovering/Resolving]
  - Dehydration [Recovering/Resolving]
  - Bradycardia [Recovering/Resolving]
  - Malaise [Recovering/Resolving]

NARRATIVE: CASE EVENT DATE: 20180222
